FAERS Safety Report 21663323 (Version 1)
Quarter: 2022Q4

REPORT INFORMATION
  Report Type: Spontaneous
  Country: US (occurrence: US)
  Receive Date: 20221130
  Receipt Date: 20221130
  Transmission Date: 20230113
  Serious: Yes (Life-Threatening, Hospitalization, Other)
  Sender: FDA-Public Use
  Company Number: US-PFIZER INC-PV202200111114

PATIENT
  Age: 40 Year
  Sex: Male

DRUGS (1)
  1. ARGININE HYDROCHLORIDE [Suspect]
     Active Substance: ARGININE HYDROCHLORIDE
     Indication: MELAS syndrome
     Dosage: UNK
     Route: 042

REACTIONS (2)
  - Acidosis hyperchloraemic [Recovered/Resolved]
  - Disease recurrence [Recovered/Resolved]
